FAERS Safety Report 22289623 (Version 1)
Quarter: 2023Q2

REPORT INFORMATION
  Report Type: Spontaneous
  Country: GB (occurrence: None)
  Receive Date: 20230505
  Receipt Date: 20230505
  Transmission Date: 20230721
  Serious: Yes (Hospitalization)
  Sender: FDA-Public Use
  Company Number: 2023A099581

PATIENT
  Sex: Female

DRUGS (2)
  1. SYMBICORT [Suspect]
     Active Substance: BUDESONIDE\FORMOTEROL FUMARATE DIHYDRATE
     Indication: Asthma
     Dosage: 160.0UG UNKNOWN
     Route: 055
     Dates: start: 202210
  2. BECLOMETHASONE\FORMOTEROL [Concomitant]
     Active Substance: BECLOMETHASONE\FORMOTEROL

REACTIONS (7)
  - Blood sodium decreased [Unknown]
  - Pain [Unknown]
  - Alopecia [Unknown]
  - Onychomalacia [Unknown]
  - Drug dependence [Unknown]
  - Blood glucose increased [Unknown]
  - Hyperthyroidism [Unknown]
